FAERS Safety Report 6917803-1 (Version None)
Quarter: 2010Q3

REPORT INFORMATION
  Report Type: 
  Country: None (occurrence: None)
  Receive Date: 20100810
  Receipt Date: 20090424
  Transmission Date: 20110219
  Serious: No
  Sender: FDA-Public Use
  Company Number: US-PFIZER INC-2008054682

PATIENT
  Sex: Male
  Weight: 75.7 kg

DRUGS (1)
  1. CELEBREX [Suspect]
     Indication: OSTEOARTHRITIS
     Dosage: 200 MG, 1X/DAY
     Route: 048
     Dates: start: 20080401, end: 20090416

REACTIONS (5)
  - FATIGUE [None]
  - FLATULENCE [None]
  - PRURITUS [None]
  - SKIN HAEMORRHAGE [None]
  - URINARY TRACT INFECTION [None]
